FAERS Safety Report 23637246 (Version 1)
Quarter: 2024Q1

REPORT INFORMATION
  Report Type: Spontaneous
  Country: US (occurrence: None)
  Receive Date: 20240315
  Receipt Date: 20240315
  Transmission Date: 20240410
  Serious: Yes (Hospitalization)
  Sender: FDA-Public Use
  Company Number: None

PATIENT
  Age: 36 Year
  Sex: Male

DRUGS (2)
  1. RINVOQ [Suspect]
     Active Substance: UPADACITINIB
     Indication: Crohn^s disease
     Dosage: FREQUENCY : DAILY;?
     Route: 048
     Dates: start: 20230211
  2. HYDROCORTISONE [Concomitant]

REACTIONS (5)
  - Abdominal pain [None]
  - Fatigue [None]
  - Asthenia [None]
  - Pyrexia [None]
  - Adrenal insufficiency [None]

NARRATIVE: CASE EVENT DATE: 20240304
